FAERS Safety Report 24750513 (Version 6)
Quarter: 2025Q1

REPORT INFORMATION
  Report Type: Spontaneous
  Country: US (occurrence: US)
  Receive Date: 20241218
  Receipt Date: 20250321
  Transmission Date: 20250409
  Serious: Yes (Hospitalization, Other)
  Sender: JOHNSON AND JOHNSON
  Company Number: US-JNJFOC-20241212747

PATIENT
  Age: 46 Year
  Sex: Male
  Weight: 166 kg

DRUGS (11)
  1. XARELTO [Suspect]
     Active Substance: RIVAROXABAN
     Indication: Deep vein thrombosis
     Route: 048
     Dates: start: 202304
  2. XARELTO [Suspect]
     Active Substance: RIVAROXABAN
     Route: 048
     Dates: start: 20241215
  3. XARELTO [Suspect]
     Active Substance: RIVAROXABAN
     Dosage: FOR 3 WEEKS
     Route: 048
  4. XARELTO [Suspect]
     Active Substance: RIVAROXABAN
     Route: 048
     Dates: start: 202405
  5. HUMAN IMMUNOGLOBULIN G [Suspect]
     Active Substance: HUMAN IMMUNOGLOBULIN G
     Indication: Immune enhancement therapy
     Route: 042
  6. RUBINOL [Concomitant]
  7. RUBINOL [Concomitant]
  8. GLYCOPYRROLATE [Concomitant]
     Active Substance: GLYCOPYRROLATE
     Indication: Hyperhidrosis
     Route: 048
     Dates: start: 20211025
  9. VIIBRYD [Concomitant]
     Active Substance: VILAZODONE HYDROCHLORIDE
     Indication: Major depression
     Route: 048
     Dates: start: 20220418
  10. VIIBRYD [Concomitant]
     Active Substance: VILAZODONE HYDROCHLORIDE
     Indication: Depression
  11. DEXEDRINE [Concomitant]
     Active Substance: DEXTROAMPHETAMINE SULFATE
     Indication: Attention deficit hyperactivity disorder
     Route: 048
     Dates: start: 20220711

REACTIONS (15)
  - Thrombosis [Unknown]
  - Deep vein thrombosis [Unknown]
  - Device occlusion [Unknown]
  - Deep vein thrombosis [Unknown]
  - Hospitalisation [Unknown]
  - Ischaemic stroke [Unknown]
  - Vascular occlusion [Unknown]
  - Spinal stenosis [Unknown]
  - Pulmonary pain [Unknown]
  - Intervertebral disc protrusion [Unknown]
  - Mass [Unknown]
  - Peripheral swelling [Unknown]
  - Visual impairment [Unknown]
  - Hyperhidrosis [Unknown]
  - Depressed mood [Unknown]

NARRATIVE: CASE EVENT DATE: 20240101
